FAERS Safety Report 5676692-6 (Version None)
Quarter: 2008Q1

REPORT INFORMATION
  Report Type: 
  Country: None (occurrence: None)
  Receive Date: 20080321
  Receipt Date: 20080321
  Transmission Date: 20080703
  Serious: Yes (Hospitalization)
  Sender: FDA-Public Use
  Company Number: None

PATIENT
  Age: 57 Year
  Sex: Female
  Weight: 60 kg

DRUGS (13)
  1. CCI-779 (TEMSIROLIMUS) [Suspect]
     Indication: MULTIPLE MYELOMA
     Dosage: 15MG/M2 WEEKLY
     Dates: start: 20070913, end: 20080306
  2. VELCADE [Suspect]
     Indication: MULTIPLE MYELOMA
     Dosage: 1.6MG/M2 WEEKLY FOR 4
     Dates: start: 20070913, end: 20080306
  3. AMOX. CLAV. ACID [Concomitant]
  4. CELEXA [Concomitant]
  5. LORAZEPAM [Concomitant]
  6. LYRICA [Concomitant]
  7. VITAMIN CAP [Concomitant]
  8. NEUPOGEN [Concomitant]
  9. OXYCODONE HCL [Concomitant]
  10. PREDNISONE TAB [Concomitant]
  11. VALTREX [Concomitant]
  12. ZITHROMAX [Concomitant]
  13. ZOFRAN [Concomitant]

REACTIONS (3)
  - BODY TEMPERATURE INCREASED [None]
  - INFLUENZA [None]
  - MALAISE [None]
